FAERS Safety Report 13742420 (Version 1)
Quarter: 2017Q3

REPORT INFORMATION
  Report Type: Spontaneous
  Country: US (occurrence: US)
  Receive Date: 20170711
  Receipt Date: 20170711
  Transmission Date: 20171127
  Serious: Yes (Other)
  Sender: FDA-Public Use
  Company Number: US-LPDUSPRD-20170907

PATIENT

DRUGS (1)
  1. CYANOCOBALAMIN INJECTION, USP (0031-25) [Suspect]
     Active Substance: CYANOCOBALAMIN
     Dosage: UNKNOWN
     Route: 030
     Dates: start: 20170404, end: 20170420

REACTIONS (2)
  - Soft tissue infection [Unknown]
  - Wound infection bacterial [Unknown]

NARRATIVE: CASE EVENT DATE: 20170424
